FAERS Safety Report 25679837 (Version 2)
Quarter: 2025Q3

REPORT INFORMATION
  Report Type: Spontaneous
  Country: US (occurrence: US)
  Receive Date: 20250814
  Receipt Date: 20250821
  Transmission Date: 20251020
  Serious: No
  Sender: GILEAD
  Company Number: US-GILEAD-2025-0724076

PATIENT
  Age: 28 Year
  Sex: Female

DRUGS (1)
  1. BIKTARVY [Suspect]
     Active Substance: BICTEGRAVIR SODIUM\EMTRICITABINE\TENOFOVIR ALAFENAMIDE FUMARATE
     Indication: HIV infection
     Route: 065

REACTIONS (3)
  - Drug resistance mutation [Unknown]
  - Maternal exposure during pregnancy [Unknown]
  - Off label use [Unknown]
